FAERS Safety Report 24622565 (Version 1)
Quarter: 2024Q4

REPORT INFORMATION
  Report Type: Spontaneous
  Country: JP (occurrence: JP)
  Receive Date: 20241115
  Receipt Date: 20241115
  Transmission Date: 20250115
  Serious: Yes (Hospitalization, Other)
  Sender: ALEXION PHARMACEUTICALS
  Company Number: JP-ASTRAZENECA-240096366_012620_P_1

PATIENT
  Age: 49 Year
  Weight: 52 kg

DRUGS (13)
  1. TRUQAP [Suspect]
     Active Substance: CAPIVASERTIB
     Indication: Breast cancer
     Dosage: DOSE UNKNOWN, 4 DAYS IN A ROW, FOLLOWED BY 3 DAYS OFF
  2. FASLODEX [Suspect]
     Active Substance: FULVESTRANT
     Indication: Breast cancer
     Dosage: DOSE UNKNOWN
  3. FASLODEX [Suspect]
     Active Substance: FULVESTRANT
  4. HERBALS [Suspect]
     Active Substance: HERBALS
     Indication: Malaise
  5. LASIX [Concomitant]
     Active Substance: FUROSEMIDE
     Dosage: DOSE UNKNOWN
  6. MIROGABALIN BESYLATE [Concomitant]
     Active Substance: MIROGABALIN BESYLATE
     Dosage: DOSE UNKNOWN
  7. Lopemin [Concomitant]
     Dosage: DOSE UNKNOWN
  8. ZOLEDRONIC [Concomitant]
     Active Substance: ZOLEDRONIC ACID
     Dosage: DOSE UNKNOWN
  9. LOXOPROFEN SODIUM [Concomitant]
     Active Substance: LOXOPROFEN SODIUM
     Dosage: DOSE UNKNOWN
  10. BETAMETHASONE [Concomitant]
     Active Substance: BETAMETHASONE
     Dosage: DOSE UNKNOWN
  11. ZINC OXIDE [Concomitant]
     Active Substance: ZINC OXIDE
     Dosage: DOSE UNKNOWN
  12. GLYCOSAMINOGLYCANS [Concomitant]
     Active Substance: GLYCOSAMINOGLYCANS
     Dosage: DOSE UNKNOWN
  13. GLYCOSAMINOGLYCANS [Concomitant]
     Active Substance: GLYCOSAMINOGLYCANS
     Dosage: DOSE UNKNOWN
     Route: 065

REACTIONS (1)
  - Stevens-Johnson syndrome [Recovered/Resolved]
